FAERS Safety Report 8397943-3 (Version None)
Quarter: 2012Q2

REPORT INFORMATION
  Report Type: 
  Country: None (occurrence: None)
  Receive Date: 20120531
  Receipt Date: 20120523
  Transmission Date: 20120825
  Serious: Yes (Hospitalization)
  Sender: FDA-Public Use
  Company Number: CA-JNJFOC-20110810611

PATIENT
  Sex: Female
  Weight: 68.04 kg

DRUGS (6)
  1. ACCUPRIL [Concomitant]
  2. CLONIDINE [Concomitant]
  3. STELARA [Suspect]
     Indication: PSORIASIS
     Route: 058
     Dates: start: 20100816
  4. PANTOPRAZOLE SODIUM [Concomitant]
  5. PAXIL [Concomitant]
  6. LORAZEPAM [Concomitant]

REACTIONS (3)
  - KIDNEY INFECTION [None]
  - BLOOD POTASSIUM DECREASED [None]
  - FUNGAL INFECTION [None]
